FAERS Safety Report 4295944-8 (Version None)
Quarter: 2004Q1

REPORT INFORMATION
  Report Type: 
  Country: None (occurrence: None)
  Receive Date: 20040211
  Receipt Date: 20040123
  Transmission Date: 20041129
  Serious: Yes (Hospitalization)
  Sender: FDA-Public Use
  Company Number: F01200301524

PATIENT
  Age: 58 Year
  Sex: Female

DRUGS (2)
  1. (OXALIPLATIN) - SOLUTION - 70 MG/M2 [Suspect]
     Indication: NON-SMALL CELL LUNG CANCER
     Dosage: 70 MG/M2 ON DAY 1 AND DAY 8, INTRAVENOUS NOS
     Route: 042
     Dates: start: 20031216, end: 20031216
  2. (GEMCITABINE) - SOLUTION - 1250 MG/M2 [Suspect]
     Dosage: 1250 MG/M2 ON DAY 1 AND DAY 8, INTRAVENOUS NOS
     Route: 042
     Dates: start: 20031216, end: 20031216

REACTIONS (8)
  - DYSPHAGIA [None]
  - DYSPNOEA [None]
  - LARYNGOSPASM [None]
  - ODYNOPHAGIA [None]
  - OESOPHAGEAL OBSTRUCTION [None]
  - ORAL DYSAESTHESIA [None]
  - ORAL PAIN [None]
  - PHARYNGOLARYNGEAL PAIN [None]
